FAERS Safety Report 4652102-2 (Version None)
Quarter: 2005Q2

REPORT INFORMATION
  Report Type: 
  Country: None (occurrence: None)
  Receive Date: 20050408
  Receipt Date: 20041216
  Transmission Date: 20051028
  Serious: No
  Sender: FDA-Public Use
  Company Number: 235233K04USA

PATIENT
  Age: 45 Year
  Sex: Male

DRUGS (7)
  1. REBIF [Suspect]
     Indication: MULTIPLE SCLEROSIS
     Dosage: 44 MCG, 3 IN 1 WEEKS, SUBCUTANEOUS
     Route: 058
     Dates: start: 20041018
  2. TYLENOL WITH CODEINE (PANADEINE CO) [Concomitant]
  3. VALIUM [Concomitant]
  4. VOLTAREN [Concomitant]
  5. AZULFIDINE [Concomitant]
  6. ENBREL [Concomitant]
  7. MULTIVITAMIN [Concomitant]

REACTIONS (2)
  - INJECTION SITE PAIN [None]
  - VOMITING PROJECTILE [None]
